FAERS Safety Report 22284422 (Version 2)
Quarter: 2023Q2

REPORT INFORMATION
  Report Type: Spontaneous
  Country: US (occurrence: US)
  Receive Date: 20230504
  Receipt Date: 20230522
  Transmission Date: 20230722
  Serious: Yes (Other)
  Sender: FDA-Public Use
  Company Number: US-PFIZER INC-PV202300077991

PATIENT
  Age: 60 Year
  Sex: Male

DRUGS (5)
  1. DILANTIN [Interacting]
     Active Substance: PHENYTOIN
     Dosage: 400 MG, DAILY
  2. APIXABAN [Interacting]
     Active Substance: APIXABAN
     Dosage: UNK
  3. ATORVASTATIN [Suspect]
     Active Substance: ATORVASTATIN
     Dosage: 10 MG, DAILY
  4. HYDROCHLOROTHIAZIDE [Suspect]
     Active Substance: HYDROCHLOROTHIAZIDE
     Dosage: UNK
  5. LISINOPRIL [Suspect]
     Active Substance: LISINOPRIL
     Dosage: UNK

REACTIONS (5)
  - Genitourinary operation [Unknown]
  - Fibrin D dimer increased [Unknown]
  - Drug interaction [Unknown]
  - Deep vein thrombosis [Unknown]
  - Pulmonary embolism [Unknown]
